FAERS Safety Report 8492253-8 (Version None)
Quarter: 2012Q3

REPORT INFORMATION
  Report Type: 
  Country: None (occurrence: None)
  Receive Date: 20120706
  Receipt Date: 20120703
  Transmission Date: 20120928
  Serious: Yes (Other)
  Sender: FDA-Public Use
  Company Number: JP-EISAI INC-E2020-11016-SPO-JP

PATIENT
  Age: 89 Year
  Sex: Male

DRUGS (9)
  1. ARICEPT [Suspect]
     Indication: DEMENTIA ALZHEIMER'S TYPE
     Route: 048
     Dates: end: 20120629
  2. UROSULOL [Concomitant]
     Route: 048
  3. SEFTAC [Concomitant]
     Route: 048
     Dates: end: 20120629
  4. LOPERAMIDE HYDROCHLORIDE [Concomitant]
     Route: 048
     Dates: end: 20120629
  5. POLYFUL [Concomitant]
     Route: 048
     Dates: end: 20120629
  6. ASPARA POTASSIUM [Concomitant]
     Route: 048
     Dates: end: 20120629
  7. FEROTYM [Concomitant]
  8. FLENIED [Concomitant]
     Route: 048
     Dates: end: 20120629
  9. SYMMETREL [Concomitant]
     Route: 048
     Dates: end: 20120629

REACTIONS (2)
  - CONVULSION [None]
  - MIOSIS [None]
